FAERS Safety Report 5477934-2 (Version None)
Quarter: 2007Q4

REPORT INFORMATION
  Report Type: 
  Country: None (occurrence: None)
  Receive Date: 20071005
  Receipt Date: 20071002
  Transmission Date: 20080405
  Serious: Yes (Life-Threatening, Hospitalization)
  Sender: FDA-Public Use
  Company Number: PHBS2007HR16361

PATIENT
  Age: 38 Year
  Sex: Male
  Weight: 62 kg

DRUGS (6)
  1. MODITEN [Suspect]
     Indication: SOMATOFORM DISORDER
     Dosage: 2.5 MG/DAY
     Route: 048
     Dates: start: 20070330, end: 20070629
  2. AMYZOL [Suspect]
     Indication: SOMATOFORM DISORDER
     Dosage: 75 MG/DAY
     Route: 048
     Dates: start: 20070330, end: 20070629
  3. NORMABEL (DIAZEPAM) [Concomitant]
     Dates: start: 20070330, end: 20070629
  4. LADIOMIL [Concomitant]
     Dates: start: 20070330, end: 20070629
  5. CERSON [Concomitant]
  6. LEPONEX [Suspect]
     Indication: SOMATOFORM DISORDER
     Dosage: 100 MG/DAY
     Route: 048
     Dates: start: 20070330, end: 20070629

REACTIONS (12)
  - ABNORMAL BEHAVIOUR [None]
  - AMNESIA [None]
  - APRAXIA [None]
  - CONFABULATION [None]
  - DELIRIUM [None]
  - DISORIENTATION [None]
  - DYSARTHRIA [None]
  - GAIT DISTURBANCE [None]
  - MENTAL DISORDER [None]
  - MENTAL RETARDATION SEVERITY UNSPECIFIED [None]
  - PSYCHOTIC DISORDER [None]
  - SOMNOLENCE [None]
